FAERS Safety Report 19633129 (Version 2)
Quarter: 2021Q3

REPORT INFORMATION
  Report Type: Spontaneous
  Country: FR (occurrence: FR)
  Receive Date: 20210729
  Receipt Date: 20210801
  Transmission Date: 20211014
  Serious: Yes (Other)
  Sender: FDA-Public Use
  Company Number: FR-JNJFOC-20210745463

PATIENT
  Age: 61 Year
  Sex: Female
  Weight: 55 kg

DRUGS (8)
  1. ABACAVIR;LAMIVUDINE [Concomitant]
     Active Substance: ABACAVIR\LAMIVUDINE
     Indication: ANTIVIRAL TREATMENT
     Route: 065
  2. RALTEGRAVIR. [Concomitant]
     Active Substance: RALTEGRAVIR
     Indication: ANTIVIRAL TREATMENT
     Route: 065
  3. DARUNAVIR [Suspect]
     Active Substance: DARUNAVIR
     Indication: ANTIRETROVIRAL THERAPY
     Route: 048
     Dates: start: 20190103
  4. TACROLIMUS. [Interacting]
     Active Substance: TACROLIMUS
     Route: 065
     Dates: start: 20181228
  5. RITONAVIR. [Interacting]
     Active Substance: RITONAVIR
     Indication: ANTIVIRAL TREATMENT
     Route: 065
     Dates: start: 20190103
  6. ETRAVIRINE [Concomitant]
     Active Substance: ETRAVIRINE
     Indication: ANTIVIRAL TREATMENT
     Route: 065
  7. TACROLIMUS. [Interacting]
     Active Substance: TACROLIMUS
     Indication: IMMUNOSUPPRESSANT DRUG THERAPY
     Route: 065
     Dates: start: 20181215
  8. MYCOPHENOLATE MOFETIL. [Concomitant]
     Active Substance: MYCOPHENOLATE MOFETIL
     Indication: IMMUNOSUPPRESSANT DRUG THERAPY
     Route: 065
     Dates: start: 201812

REACTIONS (4)
  - Drug interaction [Recovered/Resolved]
  - Drug half-life increased [Recovered/Resolved]
  - Tremor [Recovered/Resolved]
  - Overdose [Recovered/Resolved]

NARRATIVE: CASE EVENT DATE: 20181215
